FAERS Safety Report 9797767 (Version 2)
Quarter: 2014Q1

REPORT INFORMATION
  Report Type: Spontaneous
  Country: FR (occurrence: FR)
  Receive Date: 20140106
  Receipt Date: 20140114
  Transmission Date: 20141002
  Serious: Yes (Hospitalization)
  Sender: FDA-Public Use
  Company Number: FR-JNJFOC-20131217386

PATIENT
  Age: 58 Year
  Sex: Female

DRUGS (16)
  1. CAELYX (DOXORUBICIN HYDROCHLORIDE) [Suspect]
     Indication: OVARIAN CANCER
     Route: 042
  2. CAELYX (DOXORUBICIN HYDROCHLORIDE) [Suspect]
     Indication: OVARIAN CANCER
     Route: 042
     Dates: start: 20130611, end: 20130611
  3. YONDELIS [Suspect]
     Indication: OVARIAN CANCER
     Route: 042
  4. YONDELIS [Suspect]
     Indication: OVARIAN CANCER
     Route: 042
     Dates: start: 20130611, end: 20130611
  5. FRAXODI [Concomitant]
     Indication: PRODUCT USED FOR UNKNOWN INDICATION
     Route: 058
     Dates: start: 201306
  6. CORTICOSTEROIDS [Concomitant]
     Indication: PRODUCT USED FOR UNKNOWN INDICATION
     Route: 065
     Dates: start: 20130611
  7. SPASFON [Concomitant]
     Indication: PRODUCT USED FOR UNKNOWN INDICATION
     Route: 042
     Dates: start: 20130611, end: 20130706
  8. PRIMPERAN [Concomitant]
     Indication: PRODUCT USED FOR UNKNOWN INDICATION
     Route: 048
     Dates: start: 20130611, end: 20130706
  9. ZOPHREN [Concomitant]
     Indication: PRODUCT USED FOR UNKNOWN INDICATION
     Route: 048
     Dates: start: 20130611, end: 20130706
  10. VOGALENE [Concomitant]
     Indication: PRODUCT USED FOR UNKNOWN INDICATION
     Route: 058
     Dates: start: 20130611
  11. XANAX [Concomitant]
     Indication: PRODUCT USED FOR UNKNOWN INDICATION
     Route: 048
     Dates: start: 20130706
  12. PARACETAMOL [Concomitant]
     Route: 048
  13. INSULIN [Concomitant]
     Route: 058
  14. LYSANXIA [Concomitant]
     Route: 048
  15. STILNOX [Concomitant]
     Route: 048
  16. COAPROVEL [Concomitant]
     Indication: HYPERTENSION
     Route: 048

REACTIONS (1)
  - Pancreatitis acute [Recovered/Resolved]
